FAERS Safety Report 6240454-1 (Version None)
Quarter: 2009Q2

REPORT INFORMATION
  Report Type: 
  Country: None (occurrence: None)
  Receive Date: 20090618
  Receipt Date: 20090618
  Transmission Date: 20091009
  Serious: No
  Sender: FDA-Public Use
  Company Number: None

PATIENT
  Age: 27 Year
  Sex: Female
  Weight: 122.4712 kg

DRUGS (1)
  1. ZICAM COLD RELIEF NASAL GEL [Suspect]
     Indication: NASOPHARYNGITIS
     Dosage: ONE PUMP IN EACH NOSTRIL EVERY FOUR HOURS NASAL
     Route: 045
     Dates: start: 20090615, end: 20090617

REACTIONS (1)
  - DYSGEUSIA [None]
